FAERS Safety Report 7725775-5 (Version None)
Quarter: 2011Q3

REPORT INFORMATION
  Report Type: 
  Country: None (occurrence: None)
  Receive Date: 20110902
  Receipt Date: 20110825
  Transmission Date: 20111222
  Serious: Yes (Hospitalization, Other)
  Sender: FDA-Public Use
  Company Number: US-BRISTOL-MYERS SQUIBB COMPANY-16003535

PATIENT
  Age: 71 Year
  Sex: Male
  Weight: 101 kg

DRUGS (4)
  1. COUMADIN [Suspect]
     Indication: HEART VALVE REPLACEMENT
     Dates: start: 20010101
  2. ENOXAPARIN SODIUM [Suspect]
  3. TUSSIONEX [Concomitant]
     Dosage: 1DF IS 2 TEASPOONS
  4. WARFARIN SODIUM [Suspect]

REACTIONS (6)
  - CALCULUS BLADDER [None]
  - HAEMORRHAGE [None]
  - LUNG NEOPLASM MALIGNANT [None]
  - DRUG INEFFECTIVE [None]
  - HAEMOGLOBIN DECREASED [None]
  - TOOTH EXTRACTION [None]
